FAERS Safety Report 5293695-4 (Version None)
Quarter: 2007Q2

REPORT INFORMATION
  Report Type: 
  Country: None (occurrence: None)
  Receive Date: 20070411
  Receipt Date: 20070403
  Transmission Date: 20071010
  Serious: Yes (Life-Threatening, Hospitalization)
  Sender: FDA-Public Use
  Company Number: US-SHR-US-2007-011715

PATIENT
  Age: 75 Year
  Sex: Male

DRUGS (1)
  1. ULTRAVIST (PHARMACY BULK) [Suspect]
     Dosage: 125 ML, 1 DOSE
     Route: 042
     Dates: start: 20070312, end: 20070312

REACTIONS (1)
  - CARDIAC ARREST [None]
